FAERS Safety Report 24686931 (Version 1)
Quarter: 2024Q4

REPORT INFORMATION
  Report Type: Spontaneous
  Country: US (occurrence: None)
  Receive Date: 20241130
  Receipt Date: 20241130
  Transmission Date: 20250115
  Serious: Yes (Life-Threatening, Disabling)
  Sender: Public
  Company Number: None

PATIENT
  Age: 27 Year
  Sex: Male
  Weight: 76.5 kg

DRUGS (6)
  1. PROPECIA [Suspect]
     Active Substance: FINASTERIDE
     Indication: Alopecia
     Dates: start: 20211112, end: 20240101
  2. PROPECIA [Concomitant]
     Active Substance: FINASTERIDE
  3. TADALAFIL [Concomitant]
     Active Substance: TADALAFIL
  4. Quviqiq [Concomitant]
  5. FISH OIL [Concomitant]
     Active Substance: FISH OIL
  6. VITAMIN D [Concomitant]
     Active Substance: VITAMIN D NOS

REACTIONS (12)
  - Mental disorder [None]
  - Cognitive disorder [None]
  - Physical disability [None]
  - Sexual dysfunction [None]
  - Fibrosis [None]
  - Penis disorder [None]
  - Anhedonia [None]
  - Gynaecomastia [None]
  - Memory impairment [None]
  - Fatigue [None]
  - Anxiety [None]
  - Suicidal ideation [None]

NARRATIVE: CASE EVENT DATE: 20240120
